FAERS Safety Report 25373119 (Version 1)
Quarter: 2025Q2

REPORT INFORMATION
  Report Type: Spontaneous
  Country: US (occurrence: US)
  Receive Date: 20250529
  Receipt Date: 20250529
  Transmission Date: 20250716
  Serious: No
  Sender: CIPLA
  Company Number: US-CIPLA LTD.-2024US14531

PATIENT

DRUGS (2)
  1. ALBUTEROL [Suspect]
     Active Substance: ALBUTEROL
     Indication: Dyspnoea
     Dosage: 180 MICROGRAM, QID (EVERY 6 HOURS)
     Dates: start: 202409
  2. ALBUTEROL [Suspect]
     Active Substance: ALBUTEROL
     Indication: Lung disorder
     Dosage: 180 MICROGRAM, QID (EVERY 6 HOURS)
     Dates: start: 20241125

REACTIONS (2)
  - Product use complaint [Unknown]
  - Device delivery system issue [Unknown]

NARRATIVE: CASE EVENT DATE: 20241125
